FAERS Safety Report 5159182-9 (Version None)
Quarter: 2006Q4

REPORT INFORMATION
  Report Type: 
  Country: None (occurrence: None)
  Receive Date: 20061120
  Receipt Date: 20061109
  Transmission Date: 20070319
  Serious: Yes (Hospitalization)
  Sender: FDA-Public Use
  Company Number: 2006-150207-NL

PATIENT
  Age: 42 Year
  Sex: Female

DRUGS (2)
  1. MIRTAZAPINE [Suspect]
  2. DIAZEPAM [Suspect]

REACTIONS (10)
  - COMA [None]
  - HYPOTENSION [None]
  - HYPOTONIA [None]
  - INCOHERENT [None]
  - INCORRECT DOSE ADMINISTERED [None]
  - LOSS OF CONSCIOUSNESS [None]
  - MIOSIS [None]
  - OVERDOSE [None]
  - REFLEXES ABNORMAL [None]
  - RESPIRATORY RATE DECREASED [None]
